FAERS Safety Report 9631893 (Version 2)
Quarter: 2013Q4

REPORT INFORMATION
  Report Type: Spontaneous
  Country: IT (occurrence: None)
  Receive Date: 20131016
  Receipt Date: 20131220
  Transmission Date: 20140711
  Serious: Yes (Hospitalization)
  Sender: FDA-Public Use
  Company Number: AUR-APL-2013-08608

PATIENT
  Age: 83 Year
  Sex: Male

DRUGS (11)
  1. CARVEDILOL (CARVEDILOL) [Suspect]
     Indication: PRODUCT USED FOR UNKNOWN INDICATION
     Route: 048
     Dates: start: 20080601
  2. LASIX (FUROSEMIDE) [Suspect]
     Indication: PRODUCT USED FOR UNKNOWN INDICATION
     Dosage: 100 MG (25 MG, 4 IN 1 D)
     Route: 048
     Dates: start: 20080601, end: 20130918
  3. MICARDIS (TELMISARTAN) [Suspect]
     Indication: HYPERTENSION
     Route: 048
     Dates: start: 20130101, end: 20130918
  4. ALDACTONE (SPIRONOLACTONE) [Suspect]
     Indication: PRODUCT USED FOR UNKNOWN INDICATION
     Route: 048
     Dates: start: 20130101, end: 20130918
  5. AVODART (ALLOPURINOL) [Concomitant]
  6. ZYLORIC (ALLOPURINOL) [Concomitant]
  7. TAVOR (LORAZEPAM) [Concomitant]
  8. COUMADINE (WARFARIN SODIUM) [Concomitant]
  9. LANSOX (LANSOPRAZOLE) [Concomitant]
  10. AMIODARONE  (AMIODARONE) [Concomitant]
  11. ROSUVASTATIN (ROSUVASTATIN) [Concomitant]

REACTIONS (5)
  - Dehydration [None]
  - Hypotension [None]
  - Iatrogenic injury [None]
  - Renal failure acute [None]
  - Syncope [None]
